FAERS Safety Report 19746645 (Version 1)
Quarter: 2021Q3

REPORT INFORMATION
  Report Type: Spontaneous
  Country: US (occurrence: US)
  Receive Date: 20210825
  Receipt Date: 20210825
  Transmission Date: 20211014
  Serious: No
  Sender: FDA-Public Use
  Company Number: US-GALDERMA-US2021013154

PATIENT

DRUGS (3)
  1. DIFFERIN DETOX SOOTHE MASK (COSMETICS) [Suspect]
     Active Substance: COSMETICS
     Indication: ACNE
     Dosage: 1 DOSAGE FORM
     Route: 061
     Dates: start: 202105, end: 202105
  2. DIFFERIN GENTLE CLEANSER [Suspect]
     Active Substance: COSMETICS
     Indication: ACNE
     Dosage: 1 DOSAGE FORM
     Route: 061
     Dates: start: 202105, end: 202105
  3. DIFFERIN GEL [Suspect]
     Active Substance: ADAPALENE
     Indication: ACNE
     Dosage: 1 DOSAGE FORM, QD
     Route: 061
     Dates: start: 202105, end: 202105

REACTIONS (9)
  - Rash papular [Recovered/Resolved]
  - Skin burning sensation [Recovered/Resolved]
  - Hypersensitivity [Recovered/Resolved]
  - Skin ulcer [Recovered/Resolved]
  - Blister [Recovered/Resolved]
  - Skin infection [Recovered/Resolved]
  - Scar [Not Recovered/Not Resolved]
  - Pain of skin [Recovered/Resolved]
  - Rash [Recovered/Resolved]

NARRATIVE: CASE EVENT DATE: 202105
